FAERS Safety Report 18269488 (Version 2)
Quarter: 2020Q3

REPORT INFORMATION
  Report Type: Report from Study
  Country: US (occurrence: US)
  Receive Date: 20200915
  Receipt Date: 20200923
  Transmission Date: 20201103
  Serious: Yes (Hospitalization, Other)
  Sender: FDA-Public Use
  Company Number: US-PFIZER INC-2020350406

PATIENT
  Age: 62 Year
  Sex: Male
  Weight: 94.33 kg

DRUGS (7)
  1. CELEBREX [Suspect]
     Active Substance: CELECOXIB
     Dosage: UNK
     Dates: start: 2020
  2. HUMIRA [Suspect]
     Active Substance: ADALIMUMAB
     Dosage: 40 MG (40 MG, 1 IN 2 WK)
     Route: 058
     Dates: start: 2016
  3. CELEBREX [Suspect]
     Active Substance: CELECOXIB
     Dosage: UNK (DECREASED DOSE TO EITHER 250MG OR 500MG)
     Dates: start: 2020, end: 2020
  4. HUMIRA [Suspect]
     Active Substance: ADALIMUMAB
     Indication: RHEUMATOID ARTHRITIS
     Dosage: 40 MG (40 MG,1 IN 2?2),
     Route: 058
     Dates: start: 2016
  5. PRAVASTATIN. [Concomitant]
     Active Substance: PRAVASTATIN
     Indication: BLOOD CHOLESTEROL INCREASED
     Dosage: UNK
  6. HUMIRA [Suspect]
     Active Substance: ADALIMUMAB
     Dosage: UNK
     Dates: start: 20200516
  7. CELEBREX [Suspect]
     Active Substance: CELECOXIB
     Indication: ARTHRITIS
     Dosage: UNK
     Dates: end: 202005

REACTIONS (12)
  - Renal impairment [Recovered/Resolved]
  - Illness [Recovered/Resolved]
  - Feeling abnormal [Recovering/Resolving]
  - Nasopharyngitis [Unknown]
  - Diverticulitis [Unknown]
  - Dehydration [Recovered/Resolved]
  - Heart rate irregular [Not Recovered/Not Resolved]
  - Cardiac disorder [Unknown]
  - Pancreatic failure [Recovered/Resolved]
  - Blood potassium decreased [Recovering/Resolving]
  - Nail discolouration [Unknown]
  - Viral infection [Recovered/Resolved]

NARRATIVE: CASE EVENT DATE: 2020
